FAERS Safety Report 7684040-5 (Version None)
Quarter: 2011Q3

REPORT INFORMATION
  Report Type: 
  Country: None (occurrence: None)
  Receive Date: 20110815
  Receipt Date: 20110810
  Transmission Date: 20111222
  Serious: Yes (Hospitalization)
  Sender: FDA-Public Use
  Company Number: AU-PFIZER INC-2011184171

PATIENT
  Age: 82 Year
  Sex: Female

DRUGS (1)
  1. TRAZODONE HCL [Suspect]
     Dosage: 37.5 MG, UNK
     Route: 048

REACTIONS (1)
  - STRESS CARDIOMYOPATHY [None]
